FAERS Safety Report 16826263 (Version 2)
Quarter: 2019Q4

REPORT INFORMATION
  Report Type: Report from Study
  Country: BD (occurrence: BD)
  Receive Date: 20190919
  Receipt Date: 20191024
  Transmission Date: 20200122
  Serious: Yes (Death, Hospitalization)
  Sender: FDA-Public Use
  Company Number: PHHY2019BD217445

PATIENT
  Age: 66 Year
  Sex: Male
  Weight: 65 kg

DRUGS (2)
  1. VOTRIENT [Suspect]
     Active Substance: PAZOPANIB HYDROCHLORIDE
     Indication: METASTASES TO LUNG
  2. VOTRIENT [Suspect]
     Active Substance: PAZOPANIB HYDROCHLORIDE
     Indication: RENAL CANCER
     Dosage: 3 DF, QD
     Route: 048
     Dates: end: 20190823

REACTIONS (2)
  - Renal cancer stage IV [Fatal]
  - Asthenia [Unknown]

NARRATIVE: CASE EVENT DATE: 20190902
